FAERS Safety Report 20392147 (Version 1)
Quarter: 2022Q1

REPORT INFORMATION
  Report Type: Spontaneous
  Country: US (occurrence: None)
  Receive Date: 20220128
  Receipt Date: 20220128
  Transmission Date: 20220423
  Serious: Yes (Other)
  Sender: FDA-Public Use
  Company Number: None

PATIENT
  Sex: Female

DRUGS (1)
  1. BOTOX [Suspect]
     Active Substance: ONABOTULINUMTOXINA
     Indication: Migraine
     Dosage: INJECT 200 UNITS IN THE MUSCLE INTO HEAD AND NECK MUSCLES EVERY 12 WEEKS.?
     Dates: start: 20210609

REACTIONS (1)
  - Oropharyngeal surgery [None]
